FAERS Safety Report 7582394-1 (Version None)
Quarter: 2011Q2

REPORT INFORMATION
  Report Type: 
  Country: None (occurrence: None)
  Receive Date: 20110630
  Receipt Date: 20110616
  Transmission Date: 20111010
  Serious: Yes (Other)
  Sender: FDA-Public Use
  Company Number: CA-JNJFOC-20101201512

PATIENT
  Sex: Male
  Weight: 81 kg

DRUGS (4)
  1. IMURAN [Concomitant]
  2. REMICADE [Suspect]
     Indication: COLITIS ULCERATIVE
     Route: 042
     Dates: start: 20100614
  3. PREDNISONE [Concomitant]
  4. CODEINE [Concomitant]

REACTIONS (2)
  - OSTEOARTHRITIS [None]
  - ABDOMINAL PAIN [None]
